FAERS Safety Report 21032940 (Version 2)
Quarter: 2022Q3

REPORT INFORMATION
  Report Type: Spontaneous
  Country: US (occurrence: US)
  Receive Date: 20220701
  Receipt Date: 20220722
  Transmission Date: 20221027
  Serious: Yes (Other)
  Sender: FDA-Public Use
  Company Number: US-BAYER-2022A088076

PATIENT
  Age: 18 Year
  Sex: Male

DRUGS (4)
  1. KOVALTRY [Suspect]
     Active Substance: ANTIHEMOPHILIC FACTOR, HUMAN RECOMBINANT
     Dosage: 1500 DF, TWO TO THREE TIMES A WEEK FOR PROPHY AND PRN FOR MINOS BLEEDS
     Route: 042
  2. KOVALTRY [Suspect]
     Active Substance: ANTIHEMOPHILIC FACTOR, HUMAN RECOMBINANT
     Dosage: RESOLVE A LEFT ANKLE BLEED
     Route: 042
     Dates: start: 20220117, end: 20220117
  3. KOVALTRY [Suspect]
     Active Substance: ANTIHEMOPHILIC FACTOR, HUMAN RECOMBINANT
     Dosage: RESOLVE A LEFT ANKLE BLEED
     Route: 042
     Dates: start: 20220125, end: 20220125
  4. KOVALTRY [Suspect]
     Active Substance: ANTIHEMOPHILIC FACTOR, HUMAN RECOMBINANT
     Dosage: PT INFUSED 1 DOSE TO RESOLVE A LEFT WRIST BLEED.
     Route: 042
     Dates: start: 20220210, end: 20220210

REACTIONS (2)
  - Haemarthrosis [None]
  - Haemarthrosis [None]

NARRATIVE: CASE EVENT DATE: 20220321
